FAERS Safety Report 8288934-1 (Version None)
Quarter: 2012Q2

REPORT INFORMATION
  Report Type: 
  Country: None (occurrence: None)
  Receive Date: 20120417
  Receipt Date: 20120410
  Transmission Date: 20120825
  Serious: Yes (Hospitalization)
  Sender: FDA-Public Use
  Company Number: US-BAYER-2011-082001

PATIENT
  Age: 19 Year
  Sex: Female
  Weight: 92.971 kg

DRUGS (5)
  1. HYDROCODONE BITARTRATE AND ACETAMINOPHEN [Concomitant]
     Dosage: 5-500 MG
     Route: 048
     Dates: start: 20080814, end: 20100816
  2. MOXIFLOXACIN [Concomitant]
     Dosage: UNK
     Dates: start: 20090301
  3. YAZ [Suspect]
     Indication: CONTRACEPTION
     Dosage: UNK
     Dates: start: 20080801, end: 20090922
  4. PERCOCET [Concomitant]
  5. FLAGYL [Concomitant]
     Dosage: UNK
     Dates: start: 20090301

REACTIONS (16)
  - PANCREATITIS ACUTE [None]
  - ABDOMINAL PAIN UPPER [None]
  - DISCOMFORT [None]
  - PAIN [None]
  - ABDOMINAL DISTENSION [None]
  - STRESS [None]
  - CHOLECYSTITIS CHRONIC [None]
  - NAUSEA [None]
  - EMOTIONAL DISTRESS [None]
  - BACK PAIN [None]
  - GASTROOESOPHAGEAL REFLUX DISEASE [None]
  - DYSPEPSIA [None]
  - EPIGASTRIC DISCOMFORT [None]
  - BILIARY COLIC [None]
  - FLATULENCE [None]
  - DIARRHOEA [None]
